FAERS Safety Report 8207541-X (Version None)
Quarter: 2012Q1

REPORT INFORMATION
  Report Type: 
  Country: None (occurrence: None)
  Receive Date: 20120313
  Receipt Date: 20120313
  Transmission Date: 20120608
  Serious: Yes (Hospitalization)
  Sender: FDA-Public Use
  Company Number: None

PATIENT
  Sex: Female
  Weight: 60.5 kg

DRUGS (3)
  1. LEFLUNOMIDE [Concomitant]
  2. PREDNISONE TAB [Concomitant]
  3. ACTEMRA/TOCLIZIMAB 4MG/K INFUSION [Suspect]
     Indication: RHEUMATOID ARTHRITIS
     Dosage: 4MG/K MONTHLY IV INFUSION
     Route: 042
     Dates: start: 20110901, end: 20120101

REACTIONS (5)
  - DEHYDRATION [None]
  - ABDOMINAL PAIN [None]
  - ABDOMINAL PAIN UPPER [None]
  - RECTAL HAEMORRHAGE [None]
  - VOMITING [None]
